FAERS Safety Report 9223618 (Version 1)
Quarter: 2013Q2

REPORT INFORMATION
  Report Type: Spontaneous
  Country: GB (occurrence: GB)
  Receive Date: 20130410
  Receipt Date: 20130410
  Transmission Date: 20140414
  Serious: Yes (Other)
  Sender: FDA-Public Use
  Company Number: GB-GLAXOSMITHKLINE-B0880255A

PATIENT
  Age: 76 Year
  Sex: Female
  Weight: 80 kg

DRUGS (7)
  1. SERETIDE [Suspect]
     Indication: CHRONIC OBSTRUCTIVE PULMONARY DISEASE
     Dosage: 2IUAX PER DAY
     Route: 055
     Dates: start: 20130225
  2. INDAPAMIDE [Concomitant]
     Indication: HYPERTENSION
     Route: 048
  3. RANITIDINE [Concomitant]
     Route: 048
  4. CANDESARTAN [Concomitant]
     Indication: HYPERTENSION
     Route: 048
  5. PREDNISOLONE [Concomitant]
     Indication: INFECTION
     Route: 048
  6. AMITRIPTYLINE [Concomitant]
     Indication: PAIN
     Route: 048
  7. SALAMOL [Concomitant]
     Route: 055

REACTIONS (3)
  - Muscle spasms [Not Recovered/Not Resolved]
  - Dysphonia [Not Recovered/Not Resolved]
  - Laryngeal pain [Not Recovered/Not Resolved]
